FAERS Safety Report 21063544 (Version 1)
Quarter: 2022Q3

REPORT INFORMATION
  Report Type: Spontaneous
  Country: US (occurrence: None)
  Receive Date: 20220711
  Receipt Date: 20220711
  Transmission Date: 20221027
  Serious: Yes (Death)
  Sender: FDA-Public Use
  Company Number: US-ROCHE-3134514

PATIENT
  Sex: Female

DRUGS (2)
  1. ZELBORAF [Suspect]
     Active Substance: VEMURAFENIB
     Indication: Bladder cancer
     Route: 048
     Dates: start: 20220409
  2. COTELLIC [Suspect]
     Active Substance: COBIMETINIB
     Indication: Bladder cancer
     Route: 065

REACTIONS (2)
  - Death [Fatal]
  - Off label use [Unknown]
